FAERS Safety Report 10076525 (Version 1)
Quarter: 2014Q2

REPORT INFORMATION
  Report Type: Spontaneous
  Country: US (occurrence: US)
  Receive Date: 20140414
  Receipt Date: 20140414
  Transmission Date: 20141212
  Serious: No
  Sender: FDA-Public Use
  Company Number: US-BAYER-2014-049896

PATIENT
  Sex: Male

DRUGS (1)
  1. MIDOL EXTENDED RELIEF CAPLET [Suspect]
     Indication: CLUSTER HEADACHE
     Dosage: 0.5 DF, QD

REACTIONS (3)
  - Incorrect dose administered [None]
  - Incorrect drug administration duration [None]
  - Therapeutic response changed [None]
